FAERS Safety Report 10185368 (Version 1)
Quarter: 2014Q2

REPORT INFORMATION
  Report Type: Spontaneous
  Country: US (occurrence: None)
  Receive Date: 20140520
  Receipt Date: 20140520
  Transmission Date: 20141212
  Serious: Yes (Disabling)
  Sender: FDA-Public Use
  Company Number: None

PATIENT
  Age: 33 Year
  Sex: Male

DRUGS (1)
  1. EFAVIRENZ [Suspect]
     Indication: HIV INFECTION
     Dosage: ONE PILL, 600 MG ONCE DAILY TAKEN BY MOUTH
     Route: 048
     Dates: start: 20070407, end: 20071231

REACTIONS (4)
  - Depression [None]
  - Confusional state [None]
  - Suicidal ideation [None]
  - Thinking abnormal [None]
